FAERS Safety Report 7283631-3 (Version None)
Quarter: 2011Q1

REPORT INFORMATION
  Report Type: 
  Country: None (occurrence: None)
  Receive Date: 20110209
  Receipt Date: 20110204
  Transmission Date: 20110831
  Serious: Yes (Death)
  Sender: FDA-Public Use
  Company Number: B0698430A

PATIENT
  Sex: Female
  Weight: 37 kg

DRUGS (26)
  1. METHOTREXATE [Concomitant]
     Indication: IMMUNOSUPPRESSION
     Dosage: 14MG PER DAY
     Route: 042
     Dates: start: 20100716, end: 20100716
  2. MEROPENEM [Concomitant]
     Dosage: 2G PER DAY
     Route: 042
     Dates: start: 20100801, end: 20100801
  3. URSO 250 [Concomitant]
     Dosage: 600MG PER DAY
     Route: 048
     Dates: start: 20100713, end: 20100717
  4. ALLELOCK [Concomitant]
     Dosage: 10MG PER DAY
     Route: 048
     Dates: start: 20100713, end: 20100717
  5. FLUDARABINE PHOSPHATE [Concomitant]
     Dosage: 30MGM2 PER DAY
     Route: 042
     Dates: start: 20100709, end: 20100713
  6. VFEND [Concomitant]
     Dosage: 600MG PER DAY
     Route: 048
     Dates: start: 20100726, end: 20100727
  7. ALBUMIN (HUMAN) [Concomitant]
     Dosage: 12.5G PER DAY
     Route: 042
     Dates: start: 20100727, end: 20100801
  8. FUROSEMIDE [Concomitant]
     Route: 042
     Dates: start: 20100719, end: 20100727
  9. ALKERAN [Suspect]
     Indication: CORD BLOOD TRANSPLANT THERAPY
     Dosage: 140MGM2 PER DAY
     Route: 042
     Dates: start: 20100713, end: 20100713
  10. MAXIPIME [Concomitant]
     Dosage: 4G PER DAY
     Route: 042
     Dates: start: 20100713, end: 20100731
  11. MIYA BM [Concomitant]
     Dosage: 3IUAX PER DAY
     Route: 048
     Dates: start: 20100713, end: 20100717
  12. FUNGUARD [Concomitant]
     Dosage: 50MG PER DAY
     Route: 042
     Dates: start: 20100713, end: 20100727
  13. VANCOMYCIN [Concomitant]
     Dosage: 2G PER DAY
     Route: 042
     Dates: start: 20100718, end: 20100721
  14. ALBUMIN (HUMAN) [Concomitant]
     Dosage: 12.5G PER DAY
     Route: 042
     Dates: start: 20100725, end: 20100725
  15. METHOTREXATE [Concomitant]
     Dosage: 10MG PER DAY
     Route: 042
     Dates: start: 20100718, end: 20100718
  16. NOREPINEPHRINE BITARTRATE [Concomitant]
     Dosage: .025G PER DAY
     Dates: start: 20100727, end: 20100801
  17. RADIOTHERAPY [Suspect]
  18. NEUTROGIN [Concomitant]
     Dates: start: 20100724, end: 20100801
  19. CYCLOSPORINE [Suspect]
     Indication: IMMUNOSUPPRESSION
     Dosage: 110MG PER DAY
     Route: 042
     Dates: start: 20100714, end: 20100801
  20. METHOTREXATE [Concomitant]
     Dosage: 10MG PER DAY
     Route: 042
     Dates: start: 20100721, end: 20100721
  21. AMBISOME [Concomitant]
     Dosage: 150MG PER DAY
     Route: 042
     Dates: start: 20100728, end: 20100801
  22. VICCLOX [Concomitant]
     Dosage: 500MG PER DAY
     Route: 042
     Dates: start: 20100713, end: 20100801
  23. CALONAL [Concomitant]
     Route: 048
     Dates: start: 20100713, end: 20100801
  24. INOVAN [Concomitant]
     Dosage: 2G PER DAY
     Route: 042
     Dates: start: 20100726, end: 20100727
  25. CYLOCIDE [Concomitant]
     Dosage: 13MGM2 PER DAY
     Route: 042
     Dates: start: 20100706, end: 20100712
  26. POLYMYXIN-B-SULFATE [Concomitant]
     Dosage: 3IU6 PER DAY
     Route: 048
     Dates: start: 20100713, end: 20100719

REACTIONS (5)
  - RENAL DISORDER [None]
  - VENOOCCLUSIVE LIVER DISEASE [None]
  - SEPSIS [None]
  - JAUNDICE [None]
  - RENAL FAILURE [None]
